FAERS Safety Report 19963303 (Version 1)
Quarter: 2021Q4

REPORT INFORMATION
  Report Type: Spontaneous
  Country: US (occurrence: US)
  Receive Date: 20211016
  Receipt Date: 20211016
  Transmission Date: 20220303
  Serious: No
  Sender: FDA-Public Use
  Company Number: None

PATIENT
  Age: 37 Year
  Sex: Female
  Weight: 76.5 kg

DRUGS (2)
  1. NAPROXEN SODIUM [Suspect]
     Active Substance: NAPROXEN SODIUM
     Indication: Myalgia
     Dosage: ?          QUANTITY:500 TABLET(S);
     Route: 048
     Dates: start: 20210925, end: 20210928
  2. NAPROXEN SODIUM [Suspect]
     Active Substance: NAPROXEN SODIUM
     Indication: Arthralgia

REACTIONS (5)
  - Product substitution issue [None]
  - Back pain [None]
  - Renal pain [None]
  - Abdominal discomfort [None]
  - Abdominal pain upper [None]
